FAERS Safety Report 7747728-3 (Version None)
Quarter: 2011Q3

REPORT INFORMATION
  Report Type: 
  Country: None (occurrence: None)
  Receive Date: 20110913
  Receipt Date: 20110902
  Transmission Date: 20111222
  Serious: Yes (Other)
  Sender: FDA-Public Use
  Company Number: US-PERRIGO-11US007533

PATIENT

DRUGS (1)
  1. NAPROXEN SODIUM AND PSEUDOEPHEDRINE HYDROCHLORIDE [Suspect]
     Indication: PRODUCT USED FOR UNKNOWN INDICATION
     Dosage: 1 TABLET, SINGLE
     Route: 048
     Dates: start: 20110902, end: 20110902

REACTIONS (5)
  - ELECTROCARDIOGRAM ABNORMAL [None]
  - ASTHENIA [None]
  - PALPITATIONS [None]
  - DIZZINESS [None]
  - CARDIAC FLUTTER [None]
